FAERS Safety Report 5362755-1 (Version None)
Quarter: 2007Q2

REPORT INFORMATION
  Report Type: 
  Country: None (occurrence: None)
  Receive Date: 20070612
  Receipt Date: 20070530
  Transmission Date: 20071010
  Serious: Yes (Disabling, Other)
  Sender: FDA-Public Use
  Company Number: 2007RR-07872

PATIENT
  Age: 73 Year
  Sex: Male
  Weight: 82 kg

DRUGS (5)
  1. FUROSEMIDE [Suspect]
     Indication: CARDIAC FAILURE CONGESTIVE
     Dosage: 40 MG, ORAL
     Route: 048
     Dates: start: 20070228, end: 20070302
  2. BENDROFLUMETHIAZIDE(BENDROFLUMETHIAZIDE) UNKNOWN [Suspect]
     Indication: CARDIAC FAILURE CONGESTIVE
     Dosage: 2.5, ORAL
     Route: 048
     Dates: start: 20041027, end: 20070226
  3. ATORVASTATIN (ATORVASTATIN0 [Concomitant]
  4. CODEINE PHOSPHATE AND ACETAMINOPHEN [Concomitant]
  5. PERINODOPRIL [Concomitant]

REACTIONS (1)
  - PEMPHIGOID [None]
